FAERS Safety Report 9179186 (Version 15)
Quarter: 2014Q4

REPORT INFORMATION
  Report Type: Report from Study
  Country: US (occurrence: US)
  Receive Date: 20130321
  Receipt Date: 20141204
  Transmission Date: 20150529
  Serious: Yes (Other)
  Sender: FDA-Public Use
  Company Number: US-GLAXOSMITHKLINE-A1016725A

PATIENT
  Sex: Male

DRUGS (3)
  1. SALBUTAMOL SULPHATE [Suspect]
     Active Substance: ALBUTEROL SULFATE
     Indication: CHRONIC OBSTRUCTIVE PULMONARY DISEASE
     Route: 055
  2. PREDNISONE. [Suspect]
     Active Substance: PREDNISONE
     Indication: PRODUCT USED FOR UNKNOWN INDICATION
     Route: 065
  3. FLUTICASONE PROPIONATE+SALMETEROL XINAFOATE [Suspect]
     Active Substance: FLUTICASONE PROPIONATE\SALMETEROL XINAFOATE
     Indication: CHRONIC OBSTRUCTIVE PULMONARY DISEASE
     Dosage: UNKNOWN STRENGTH, UNKNOWN DOSING
     Route: 055

REACTIONS (17)
  - Pain in extremity [Unknown]
  - Hunger [Unknown]
  - Pain [Not Recovered/Not Resolved]
  - Pneumonia viral [Unknown]
  - Neck pain [Unknown]
  - Ill-defined disorder [Unknown]
  - Intervertebral disc disorder [Not Recovered/Not Resolved]
  - Bladder cyst [Not Recovered/Not Resolved]
  - Puncture site pain [Unknown]
  - Hypothyroidism [Unknown]
  - Fall [Unknown]
  - Hyperthyroidism [Unknown]
  - Malaise [Unknown]
  - Fatigue [Unknown]
  - Pain of skin [Unknown]
  - Muscle strain [Not Recovered/Not Resolved]
  - Chronic obstructive pulmonary disease [Unknown]
